FAERS Safety Report 24143679 (Version 1)
Quarter: 2024Q3

REPORT INFORMATION
  Report Type: Report from Study
  Country: ES (occurrence: ES)
  Receive Date: 20240727
  Receipt Date: 20240727
  Transmission Date: 20241017
  Serious: Yes (Other)
  Sender: TEVA
  Company Number: ES-TEVA-VS-3224427

PATIENT
  Age: 55 Year
  Sex: Female

DRUGS (4)
  1. TERIPARATIDE [Suspect]
     Active Substance: TERIPARATIDE
     Indication: Osteoporosis
     Dosage: 20MCG/80MCL
     Route: 065
     Dates: start: 20240710
  2. ZALDIAR [Concomitant]
     Active Substance: ACETAMINOPHEN\TRAMADOL HYDROCHLORIDE
     Indication: Pain
     Dosage: DOSE: 1 IN MORNING, LONG TIME AGO TO CONTINUED
     Route: 065
  3. AMITRIPTYLINE [Concomitant]
     Active Substance: AMITRIPTYLINE
     Indication: Anxiety
     Dosage: DOSE:1 AT NIGHT; START DATE: LONG TIME AGO TO CONTINUED
     Route: 065
  4. LORAZEPAM [Concomitant]
     Active Substance: LORAZEPAM
     Indication: Anxiety
     Dosage: DOSE: WHEN REQUIRES; START DATE : LONG TIME TO CONTINUOUS

REACTIONS (6)
  - Tachycardia [Not Recovered/Not Resolved]
  - Dizziness [Not Recovered/Not Resolved]
  - Headache [Not Recovered/Not Resolved]
  - Fatigue [Not Recovered/Not Resolved]
  - Arthralgia [Not Recovered/Not Resolved]
  - Injection site haematoma [Not Recovered/Not Resolved]

NARRATIVE: CASE EVENT DATE: 20240710
